FAERS Safety Report 23233386 (Version 2)
Quarter: 2023Q4

REPORT INFORMATION
  Report Type: Report from Study
  Country: NL (occurrence: NL)
  Receive Date: 20231128
  Receipt Date: 20231130
  Transmission Date: 20240110
  Serious: Yes (Hospitalization)
  Sender: FDA-Public Use
  Company Number: NL-AstraZeneca-2023A267758

PATIENT
  Sex: Male
  Weight: 3.5 kg

DRUGS (2)
  1. SYNAGIS [Suspect]
     Active Substance: PALIVIZUMAB
     Indication: Antiviral prophylaxis
     Dosage: MONTHLY
     Route: 030
     Dates: start: 20231025
  2. FERROCHL DRINK 45MG/ML [Concomitant]
     Indication: Product used for unknown indication

REACTIONS (1)
  - Oxygen saturation decreased [Recovered/Resolved]
